FAERS Safety Report 11319140 (Version 8)
Quarter: 2017Q3

REPORT INFORMATION
  Report Type: Spontaneous
  Country: US (occurrence: US)
  Receive Date: 20150729
  Receipt Date: 20170714
  Transmission Date: 20171127
  Serious: Yes (Death, Hospitalization)
  Sender: FDA-Public Use
  Company Number: US-ACTELION PHARMACEUTICALS US, INC.-A-US2015-111859

PATIENT
  Age: 68 Year
  Sex: Female
  Weight: 63.49 kg

DRUGS (6)
  1. VELETRI [Suspect]
     Active Substance: EPOPROSTENOL
     Indication: PULMONARY HYPERTENSION
     Dosage: 30 NG/KG, PER MIN
     Route: 042
     Dates: start: 20140127, end: 20170326
  2. REVATIO [Concomitant]
     Active Substance: SILDENAFIL CITRATE
  3. OPSUMIT [Suspect]
     Active Substance: MACITENTAN
     Dosage: UNK
     Route: 048
  4. OPSUMIT [Suspect]
     Active Substance: MACITENTAN
     Indication: PULMONARY HYPERTENSION
     Dosage: 10 MG, QD
     Route: 048
     Dates: start: 20141209, end: 20170326
  5. VELETRI [Suspect]
     Active Substance: EPOPROSTENOL
     Dosage: 50 NG/KG, PER MIN
     Route: 042
  6. WARFARIN [Concomitant]
     Active Substance: WARFARIN

REACTIONS (13)
  - Bronchitis [Unknown]
  - Chest discomfort [Unknown]
  - Nasal congestion [Unknown]
  - Ear infection [Unknown]
  - Fatigue [Unknown]
  - Disease progression [Fatal]
  - Pyrexia [Unknown]
  - Pulmonary arterial hypertension [Fatal]
  - Sinusitis [Unknown]
  - Kidney infection [Unknown]
  - Cough [Unknown]
  - Nasopharyngitis [Unknown]
  - Peripheral swelling [Unknown]
